FAERS Safety Report 11654666 (Version 1)
Quarter: 2015Q4

REPORT INFORMATION
  Report Type: Spontaneous
  Country: US (occurrence: None)
  Receive Date: 20151022
  Receipt Date: 20151022
  Transmission Date: 20160304
  Serious: Yes (Disabling)
  Sender: FDA-Public Use
  Company Number: None

PATIENT
  Age: 38 Year
  Sex: Female
  Weight: 49.9 kg

DRUGS (1)
  1. ARMOUR THYROID [Suspect]
     Active Substance: THYROID, PORCINE\THYROID, UNSPECIFIED
     Indication: HYPOTHYROIDISM
     Dosage: 30   ONCE DAILY
     Dates: start: 20151021, end: 20151021

REACTIONS (10)
  - Anxiety [None]
  - Polymenorrhoea [None]
  - Dyspepsia [None]
  - Blood thyroid stimulating hormone abnormal [None]
  - Weight fluctuation [None]
  - Sleep disorder [None]
  - Feeling abnormal [None]
  - Alopecia [None]
  - Abdominal distension [None]
  - Fatigue [None]

NARRATIVE: CASE EVENT DATE: 20151021
